FAERS Safety Report 19181393 (Version 2)
Quarter: 2021Q4

REPORT INFORMATION
  Report Type: Spontaneous
  Country: US (occurrence: US)
  Receive Date: 20210426
  Receipt Date: 20211118
  Transmission Date: 20220304
  Serious: Yes (Death, Hospitalization)
  Sender: FDA-Public Use
  Company Number: US-NOVOPROD-804633

PATIENT
  Age: 24 Year
  Sex: Male

DRUGS (1)
  1. NOVOLOG [Suspect]
     Active Substance: INSULIN ASPART
     Indication: Type 1 diabetes mellitus
     Dosage: 200 UNITS
     Route: 065
     Dates: start: 201109

REACTIONS (2)
  - Brain death [Fatal]
  - Intentional overdose [Fatal]

NARRATIVE: CASE EVENT DATE: 20210313
